FAERS Safety Report 15175446 (Version 1)
Quarter: 2018Q3

REPORT INFORMATION
  Report Type: Spontaneous
  Country: US (occurrence: US)
  Receive Date: 20180720
  Receipt Date: 20180720
  Transmission Date: 20181010
  Serious: Yes (Life-Threatening)
  Sender: FDA-Public Use
  Company Number: US-TESARO, INC-US-2018TSO02458

PATIENT

DRUGS (1)
  1. ZEJULA [Suspect]
     Active Substance: NIRAPARIB
     Indication: OVARIAN CANCER
     Dosage: UNK
     Route: 065

REACTIONS (4)
  - Mood swings [Unknown]
  - Thrombocytopenia [Unknown]
  - Crying [Unknown]
  - Depression [Unknown]
